FAERS Safety Report 5298570-7 (Version None)
Quarter: 2007Q2

REPORT INFORMATION
  Report Type: 
  Country: None (occurrence: None)
  Receive Date: 20070409
  Receipt Date: 20070326
  Transmission Date: 20071010
  Serious: Yes (Hospitalization)
  Sender: FDA-Public Use
  Company Number: 2006BI016246

PATIENT
  Age: 42 Year
  Sex: Female
  Weight: 45.3597 kg

DRUGS (1)
  1. AVONEX [Suspect]
     Indication: MULTIPLE SCLEROSIS
     Dosage: 30 UG;QW;IM
     Route: 030
     Dates: start: 20061015, end: 20061022

REACTIONS (30)
  - ACTIVATED PARTIAL THROMBOPLASTIN TIME PROLONGED [None]
  - ACUTE HEPATIC FAILURE [None]
  - ACUTE RESPIRATORY DISTRESS SYNDROME [None]
  - AMMONIA INCREASED [None]
  - BLOOD ALCOHOL INCREASED [None]
  - BLOOD GLUCOSE INCREASED [None]
  - COAGULOPATHY [None]
  - COMA [None]
  - DEPRESSION [None]
  - DIALYSIS [None]
  - ENCEPHALOPATHY [None]
  - HAEMATEMESIS [None]
  - HAEMATOCRIT DECREASED [None]
  - HAEMOGLOBIN DECREASED [None]
  - HEPATITIS TOXIC [None]
  - HEPATORENAL SYNDROME [None]
  - HYPERSENSITIVITY [None]
  - INFLUENZA LIKE ILLNESS [None]
  - INTERNATIONAL NORMALISED RATIO ABNORMAL [None]
  - MALLORY-WEISS SYNDROME [None]
  - MEAN CELL VOLUME INCREASED [None]
  - METABOLIC ACIDOSIS [None]
  - NAUSEA [None]
  - PAIN [None]
  - PANCREATITIS [None]
  - PHARYNGEAL OEDEMA [None]
  - PLATELET COUNT DECREASED [None]
  - PROTHROMBIN TIME PROLONGED [None]
  - RENAL FAILURE ACUTE [None]
  - SWOLLEN TONGUE [None]
